FAERS Safety Report 5038795-9 (Version None)
Quarter: 2006Q2

REPORT INFORMATION
  Report Type: 
  Country: None (occurrence: None)
  Receive Date: 20060626
  Receipt Date: 20060626
  Transmission Date: 20061013
  Serious: Yes (Life-Threatening)
  Sender: FDA-Public Use
  Company Number: None

PATIENT
  Sex: Female
  Weight: 57 kg

DRUGS (1)
  1. ESTROSTEP [Suspect]
     Indication: MENORRHAGIA
     Dosage: ONE QD PO [1 LAS T 3 MONTHS]
     Route: 048

REACTIONS (1)
  - THROMBOPHLEBITIS [None]
